FAERS Safety Report 7929716-7 (Version None)
Quarter: 2011Q4

REPORT INFORMATION
  Report Type: 
  Country: None (occurrence: None)
  Receive Date: 20111121
  Receipt Date: 20111116
  Transmission Date: 20120403
  Serious: Yes (Life-Threatening, Other)
  Sender: FDA-Public Use
  Company Number: GB-JNJFOC-20111106900

PATIENT
  Age: 44 Year
  Sex: Female

DRUGS (1)
  1. NICORETTE [Suspect]
     Indication: SMOKING CESSATION THERAPY
     Dosage: ONLY ONE SPRAY
     Route: 048
     Dates: start: 20111019, end: 20111019

REACTIONS (5)
  - HEART RATE DECREASED [None]
  - DIZZINESS [None]
  - PARAESTHESIA [None]
  - PHARYNGEAL OEDEMA [None]
  - PALLOR [None]
